FAERS Safety Report 20032913 (Version 4)
Quarter: 2021Q4

REPORT INFORMATION
  Report Type: Report from Study
  Country: US (occurrence: US)
  Receive Date: 20211104
  Receipt Date: 20211207
  Transmission Date: 20220303
  Serious: Yes (Other)
  Sender: FDA-Public Use
  Company Number: US-UNITED THERAPEUTICS-UNT-2021-021980

PATIENT
  Sex: Female
  Weight: 77.098 kg

DRUGS (8)
  1. TREPROSTINIL [Suspect]
     Active Substance: TREPROSTINIL
     Indication: Pulmonary arterial hypertension
     Dosage: UNK
     Route: 048
     Dates: start: 20211022
  2. TREPROSTINIL [Suspect]
     Active Substance: TREPROSTINIL
     Dosage: 5.5 MG, TID
     Route: 048
     Dates: start: 2021, end: 2021
  3. TREPROSTINIL [Suspect]
     Active Substance: TREPROSTINIL
     Dosage: 5 MG, TID
     Route: 048
     Dates: start: 2021
  4. ORENITRAM [Suspect]
     Active Substance: TREPROSTINIL
     Indication: Pulmonary arterial hypertension
     Dosage: UNK
     Route: 048
  5. ORENITRAM [Suspect]
     Active Substance: TREPROSTINIL
     Indication: Pulmonary arterial hypertension
     Dosage: UNK
     Route: 048
  6. OPSUMIT [Concomitant]
     Active Substance: MACITENTAN
     Indication: Product used for unknown indication
     Dosage: UNK
     Route: 065
  7. UPTRAVI [Concomitant]
     Active Substance: SELEXIPAG
     Indication: Product used for unknown indication
     Dosage: UNK
     Route: 065
  8. ELIQUIS [Concomitant]
     Active Substance: APIXABAN
     Indication: Product used for unknown indication
     Dosage: UNK
     Route: 065

REACTIONS (17)
  - Haematemesis [Unknown]
  - Haematochezia [Unknown]
  - Obstruction gastric [Unknown]
  - Splenic rupture [Unknown]
  - Foreign body in throat [Unknown]
  - Gastric haemorrhage [Unknown]
  - Hypotension [Unknown]
  - Vomiting [Unknown]
  - Nausea [Unknown]
  - Flushing [Unknown]
  - Headache [Unknown]
  - Feeling hot [Unknown]
  - Weight decreased [Unknown]
  - Decreased appetite [Unknown]
  - Bacterial infection [Unknown]
  - Cough [Unknown]
  - Dehydration [Not Recovered/Not Resolved]

NARRATIVE: CASE EVENT DATE: 20210101
